FAERS Safety Report 15609135 (Version 1)
Quarter: 2018Q4

REPORT INFORMATION
  Report Type: Spontaneous
  Country: US (occurrence: US)
  Receive Date: 20181112
  Receipt Date: 20181112
  Transmission Date: 20190205
  Serious: Yes (Life-Threatening, Other)
  Sender: FDA-Public Use
  Company Number: None

PATIENT
  Age: 30 Year
  Sex: Female
  Weight: 67.5 kg

DRUGS (5)
  1. LAMOTRIGINE. [Concomitant]
     Active Substance: LAMOTRIGINE
  2. PHENTERMINE. [Concomitant]
     Active Substance: PHENTERMINE
  3. VENLAFAXINE HYDROCHLORIDE. [Suspect]
     Active Substance: VENLAFAXINE HYDROCHLORIDE
     Indication: BIPOLAR DISORDER
     Dosage: ?          QUANTITY:1 CAPSULE(S);?
     Route: 048
  4. CBD OIL [Concomitant]
     Active Substance: CANNABIDIOL\HERBALS
  5. ADULT COMPLETE MULTI-VITAMIN [Concomitant]

REACTIONS (4)
  - Pain [None]
  - Drug withdrawal syndrome [None]
  - Suicidal ideation [None]
  - Paranoia [None]

NARRATIVE: CASE EVENT DATE: 20181022
